FAERS Safety Report 5786298-6 (Version None)
Quarter: 2008Q2

REPORT INFORMATION
  Report Type: 
  Country: None (occurrence: None)
  Receive Date: 20080619
  Receipt Date: 20080530
  Transmission Date: 20081010
  Serious: Yes (Death, Hospitalization)
  Sender: FDA-Public Use
  Company Number: 2008S1009192

PATIENT
  Age: 60 Year
  Sex: Male

DRUGS (21)
  1. VANCOMYCIN [Suspect]
     Indication: OSTEITIS
     Dosage: 1 GM; DAILY INTRAVENOUS, 1 GM; POWDER FOR SOLUTION FOR INFUSION; INTRAVENOUS; DAILY
     Route: 042
     Dates: start: 20071207, end: 20071210
  2. VANCOMYCIN [Suspect]
     Indication: OSTEITIS
     Dosage: 1 GM; DAILY INTRAVENOUS, 1 GM; POWDER FOR SOLUTION FOR INFUSION; INTRAVENOUS; DAILY
     Route: 042
     Dates: start: 20071207, end: 20071210
  3. LOVENOX /00889602/ (HEPARIN-FRACTION, SODIUM SALT) [Concomitant]
     Dosage: 1 DF; DAILY SUBCUTANEOUS, 1 DF; SUBCUTANEOUS; DAILY
     Route: 058
     Dates: start: 20071122, end: 20071210
  4. LOVENOX /00889602/ (HEPARIN-FRACTION, SODIUM SALT) [Concomitant]
     Dosage: 1 DF; DAILY SUBCUTANEOUS, 1 DF; SUBCUTANEOUS; DAILY
     Route: 058
     Dates: start: 20071122, end: 20071210
  5. NEXIUM [Suspect]
     Dosage: 20 MG; DAILY ORAL, 20 MG; TABLET; ORAL; DAILY
     Route: 048
     Dates: start: 20071122, end: 20071210
  6. NEXIUM [Suspect]
     Dosage: 20 MG; DAILY ORAL, 20 MG; TABLET; ORAL; DAILY
     Route: 048
     Dates: start: 20071122, end: 20071210
  7. OSTRAM VITAMINE D3 (CALCIDO) [Suspect]
     Dosage: 1 DF; DAILY ORAL, 1 DF; ORAL; DAILY
     Route: 048
     Dates: start: 20071122, end: 20071211
  8. OSTRAM VITAMINE D3 (CALCIDO) [Suspect]
     Dosage: 1 DF; DAILY ORAL, 1 DF; ORAL; DAILY
     Route: 048
     Dates: start: 20071122, end: 20071211
  9. OLICLINOMEL /01716901/ (OLICLINOMEL /01716901/) [Suspect]
     Dosage: 2 DF; DAILY INTRAVENOUS, 2 DF; INTRAVENOUS; DAILY
     Route: 042
     Dates: end: 20071209
  10. OLICLINOMEL /01716901/ (OLICLINOMEL /01716901/) [Suspect]
     Dosage: 2 DF; DAILY INTRAVENOUS, 2 DF; INTRAVENOUS; DAILY
     Route: 042
     Dates: end: 20071209
  11. POLARAMINE [Suspect]
     Dosage: 1 DF; DAILY ORAL, 1 DF; ORAL; DAILY
     Route: 048
     Dates: end: 20071210
  12. POLARAMINE [Suspect]
     Dosage: 1 DF; DAILY ORAL, 1 DF; ORAL; DAILY
     Route: 048
     Dates: end: 20071210
  13. FLUCONAZOLE [Suspect]
     Dosage: 400 MG; DAILY ORAL, 400 MG; ORAL; DAILY
     Route: 048
     Dates: end: 20071210
  14. LIORESAL [Suspect]
     Dosage: 1.5 DF; DAILY ORAL, 1.5 DF; ORAL; DAILY
     Route: 048
     Dates: end: 20071210
  15. LIORESAL [Suspect]
     Dosage: 1.5 DF; DAILY ORAL, 1.5 DF; ORAL; DAILY
     Route: 048
     Dates: end: 20071210
  16. LASILIX RETARD (NO PREF. NAME) [Suspect]
     Dosage: 1 DF; DAILY ORAL, 1 DF; ORAL; DAILY
     Route: 048
     Dates: end: 20071210
  17. LASILIX RETARD (NO PREF. NAME) [Suspect]
     Dosage: 1 DF; DAILY ORAL, 1 DF; ORAL; DAILY
     Route: 048
     Dates: end: 20071210
  18. OXAZEPAM [Suspect]
     Dosage: 1 DF; DAILY ORAL, 1 DF; TABLET; ORAL; DAILY
     Route: 048
     Dates: end: 20071206
  19. OXAZEPAM [Suspect]
     Dosage: 1 DF; DAILY ORAL, 1 DF; TABLET; ORAL; DAILY
     Route: 048
     Dates: end: 20071206
  20. DUPHALAC /00163401/ (LACTULOSE) [Concomitant]
  21. PERFALGAN (PARACETAMOL) [Concomitant]

REACTIONS (7)
  - HEPATIC FAILURE [None]
  - INFECTION [None]
  - LEUKOPENIA [None]
  - LYMPHOPENIA [None]
  - NEUTROPENIA [None]
  - NORMOCHROMIC NORMOCYTIC ANAEMIA [None]
  - THROMBOCYTOPENIA [None]
